FAERS Safety Report 18981981 (Version 1)
Quarter: 2021Q1

REPORT INFORMATION
  Report Type: Spontaneous
  Country: US (occurrence: US)
  Receive Date: 20210308
  Receipt Date: 20210308
  Transmission Date: 20210420
  Serious: No
  Sender: FDA-Public Use
  Company Number: US-PFIZER INC-2018395846

PATIENT
  Age: 62 Year

DRUGS (1)
  1. EFFEXOR XR [Suspect]
     Active Substance: VENLAFAXINE HYDROCHLORIDE
     Dosage: 125 MG, DAILY [ ONE 50MG AND A 75MG EVERYDAY]

REACTIONS (2)
  - Illness [Unknown]
  - Intentional product misuse [Unknown]
